FAERS Safety Report 18635811 (Version 4)
Quarter: 2021Q1

REPORT INFORMATION
  Report Type: Spontaneous
  Country: JP (occurrence: JP)
  Receive Date: 20201218
  Receipt Date: 20210319
  Transmission Date: 20210419
  Serious: Yes (Other)
  Sender: FDA-Public Use
  Company Number: JP-ASTRAZENECA-2020SF36855

PATIENT
  Age: 30608 Day
  Sex: Female
  Weight: 51 kg

DRUGS (11)
  1. LYNPARZA [Suspect]
     Active Substance: OLAPARIB
     Indication: OVARIAN CANCER
     Route: 048
     Dates: start: 20191202, end: 20200105
  2. LYNPARZA [Suspect]
     Active Substance: OLAPARIB
     Indication: FALLOPIAN TUBE CANCER
     Dosage: 150 MG TWO TIMES A DAY 3 WEEKS ON/ONE WEEK OFF
     Route: 048
     Dates: start: 20200217, end: 20200315
  3. LYNPARZA [Suspect]
     Active Substance: OLAPARIB
     Indication: FALLOPIAN TUBE CANCER
     Route: 048
     Dates: start: 20191202, end: 20200105
  4. LYNPARZA [Suspect]
     Active Substance: OLAPARIB
     Indication: FALLOPIAN TUBE CANCER
     Dosage: 100 MG TWO TIMES A DAY 3 WEEKS ON/1 WEEK OFF
     Route: 048
     Dates: start: 20200316, end: 20200608
  5. MAGMITT [Concomitant]
     Active Substance: MAGNESIUM OXIDE
     Indication: CONSTIPATION
     Dosage: 330 MG THREE TIMES A DAY SINCE BEFORE NOV 2014
     Route: 065
  6. LYNPARZA [Suspect]
     Active Substance: OLAPARIB
     Indication: OVARIAN CANCER
     Dosage: 150 MG TWO TIMES A DAY IN THE MORNING ANF EVENING
     Route: 048
     Dates: start: 20200106, end: 20200127
  7. LYNPARZA [Suspect]
     Active Substance: OLAPARIB
     Indication: FALLOPIAN TUBE CANCER
     Dosage: 150 MG TWO TIMES A DAY IN THE MORNING ANF EVENING
     Route: 048
     Dates: start: 20200106, end: 20200127
  8. LYNPARZA [Suspect]
     Active Substance: OLAPARIB
     Indication: OVARIAN CANCER
     Dosage: 100 MG TWO TIMES A DAY 3 WEEKS ON/1 WEEK OFF
     Route: 048
     Dates: start: 20200316, end: 20200608
  9. METHYCOBAL [Concomitant]
     Active Substance: METHYLCOBALAMIN
     Indication: NEUROPATHY PERIPHERAL
     Dosage: 0.5 MG TWO TIMES A DAY SINCE BEFORE NOV 2014
     Route: 065
  10. LYNPARZA [Suspect]
     Active Substance: OLAPARIB
     Indication: OVARIAN CANCER
     Dosage: 150 MG TWO TIMES A DAY 3 WEEKS ON/ONE WEEK OFF
     Route: 048
     Dates: start: 20200217, end: 20200315
  11. LYRICA [Concomitant]
     Active Substance: PREGABALIN
     Indication: NEUROPATHY PERIPHERAL
     Route: 065

REACTIONS (5)
  - Neoplasm recurrence [Unknown]
  - Renal impairment [Recovered/Resolved]
  - Tumour marker increased [Unknown]
  - Product dose omission issue [Unknown]
  - Drug ineffective [Unknown]

NARRATIVE: CASE EVENT DATE: 20200127
